FAERS Safety Report 4989525-8 (Version None)
Quarter: 2006Q2

REPORT INFORMATION
  Report Type: 
  Country: None (occurrence: None)
  Receive Date: 20060426
  Receipt Date: 20060412
  Transmission Date: 20061013
  Serious: Yes (Life-Threatening, Hospitalization, Other)
  Sender: FDA-Public Use
  Company Number: US200603006013

PATIENT
  Age: 72 Year
  Sex: Female
  Weight: 65.8 kg

DRUGS (11)
  1. CYMBALTA [Suspect]
     Indication: NEURALGIA
     Dosage: SEE IMAGE
     Dates: start: 20060313, end: 20060315
  2. CYMBALTA [Suspect]
     Indication: NEURALGIA
     Dosage: SEE IMAGE
     Dates: start: 20060316
  3. GINGKOMIN (GINKGO BILOBA) [Concomitant]
  4. TAGAMET [Concomitant]
  5. ACYCLOVIR [Concomitant]
  6. DICYCLOMINE HCL [Concomitant]
  7. KETOPROFEN [Concomitant]
  8. LOVASTATIN [Concomitant]
  9. ALLEGRA [Concomitant]
  10. NEURONTIN [Concomitant]
  11. OXYCONTIN [Concomitant]

REACTIONS (9)
  - ACCIDENTAL OVERDOSE [None]
  - BACTERAEMIA [None]
  - CARDIAC DISORDER [None]
  - DECREASED APPETITE [None]
  - HYPERTENSION [None]
  - INSOMNIA [None]
  - LUNG DISORDER [None]
  - RESPIRATORY FAILURE [None]
  - SEROTONIN SYNDROME [None]
